FAERS Safety Report 8015541-8 (Version None)
Quarter: 2011Q4

REPORT INFORMATION
  Report Type: 
  Country: None (occurrence: None)
  Receive Date: 20111227
  Receipt Date: 20111227
  Transmission Date: 20120403
  Serious: Yes (Disabling)
  Sender: FDA-Public Use
  Company Number: None

PATIENT
  Sex: Male
  Weight: 90.7194 kg

DRUGS (1)
  1. PROPECIA [Suspect]
     Indication: ALOPECIA
     Dosage: 1 MG 1 A DAY ORALY LAST USED 2010
     Route: 048
     Dates: start: 20020101, end: 20080101

REACTIONS (7)
  - LOSS OF LIBIDO [None]
  - BLOOD TESTOSTERONE DECREASED [None]
  - SWELLING [None]
  - NOCTURIA [None]
  - ERECTILE DYSFUNCTION [None]
  - MAJOR DEPRESSION [None]
  - PROSTATIC DISORDER [None]
